FAERS Safety Report 4326198-1 (Version None)
Quarter: 2004Q1

REPORT INFORMATION
  Report Type: 
  Country: None (occurrence: None)
  Receive Date: 20040324
  Receipt Date: 20040312
  Transmission Date: 20041129
  Serious: Yes (Other)
  Sender: FDA-Public Use
  Company Number: HQWYE788212MAR04

PATIENT
  Age: 71 Year
  Sex: Female

DRUGS (4)
  1. CORDARONE [Suspect]
     Indication: ATRIAL FIBRILLATION
     Dosage: 200 MG 5X PER 1 WK ORAL
     Route: 048
     Dates: start: 20030314, end: 20040111
  2. CORDARONE [Suspect]
     Indication: ATRIAL FLUTTER
     Dosage: 200 MG 5X PER 1 WK ORAL
     Route: 048
     Dates: start: 20030314, end: 20040111
  3. SERETIDE (SALMETEROL/FLUTICASONE) [Concomitant]
  4. PREVISCAN (FLUINDIONE) [Concomitant]

REACTIONS (3)
  - ALVEOLITIS [None]
  - RED BLOOD CELL SEDIMENTATION RATE INCREASED [None]
  - WEIGHT DECREASED [None]
